FAERS Safety Report 7806027-1 (Version None)
Quarter: 2011Q4

REPORT INFORMATION
  Report Type: 
  Country: None (occurrence: None)
  Receive Date: 20111011
  Receipt Date: 20110927
  Transmission Date: 20120403
  Serious: Yes (Other)
  Sender: FDA-Public Use
  Company Number: GB-JNJFOC-20110911199

PATIENT
  Age: 38 Year
  Sex: Female
  Weight: 50.45 kg

DRUGS (11)
  1. MORPHINE SULFATE [Concomitant]
     Route: 065
  2. ALENDRONIC ACID [Concomitant]
     Route: 065
  3. MORPHINE SULFATE [Concomitant]
     Route: 065
  4. REMICADE [Suspect]
     Indication: SERONEGATIVE ARTHRITIS
     Dosage: DOSAGE INTERVAL 3/
     Route: 042
     Dates: start: 20110523
  5. METHOTREXATE [Concomitant]
     Route: 065
  6. ACETAMINOPHEN [Concomitant]
     Route: 065
  7. ALBUTEROL [Concomitant]
     Route: 065
  8. REMICADE [Suspect]
     Route: 042
     Dates: start: 20110915
  9. KENALOG [Concomitant]
     Route: 065
  10. FOLIC ACID [Concomitant]
     Route: 065
  11. THEOPHYLLINE [Concomitant]
     Route: 065

REACTIONS (2)
  - NEUROENDOCRINE CARCINOMA [None]
  - CERVIX CARCINOMA [None]
